FAERS Safety Report 10343163 (Version 2)
Quarter: 2014Q3

REPORT INFORMATION
  Report Type: Report from Study
  Country: GR (occurrence: GR)
  Receive Date: 20140725
  Receipt Date: 20140801
  Transmission Date: 20150326
  Serious: Yes (Death, Hospitalization)
  Sender: FDA-Public Use
  Company Number: GR-BAXTER-2014BAX041419

PATIENT
  Age: 74 Year
  Sex: Female
  Weight: 42 kg

DRUGS (6)
  1. OLICLINOMEL N7-1000E, EMULSION FOR INFUSION [Suspect]
     Active Substance: AMINO ACIDS\DEXTROSE\ELECTROLYTES NOS\SOYBEAN OIL
     Indication: PRODUCT USED FOR UNKNOWN INDICATION
     Route: 042
     Dates: start: 20140625, end: 20140713
  2. SODIUM CHLORIDE 0.9%/BAXTER [Suspect]
     Active Substance: SODIUM CHLORIDE
     Indication: BLOOD SODIUM DECREASED
     Route: 065
  3. SODIUM CHLORIDE 0.9%/BAXTER [Suspect]
     Active Substance: SODIUM CHLORIDE
     Route: 042
  4. FENTANYL. [Concomitant]
     Active Substance: FENTANYL
     Indication: ANALGESIC THERAPY
     Route: 062
  5. SODIUM CHLORIDE 0.9%/BAXTER [Suspect]
     Active Substance: SODIUM CHLORIDE
     Indication: DEHYDRATION
  6. LASIX [Suspect]
     Active Substance: FUROSEMIDE
     Indication: BLOOD SODIUM DECREASED
     Dosage: 5 AMPULES
     Route: 065

REACTIONS (6)
  - Somnolence [Recovered/Resolved]
  - Disease progression [Fatal]
  - Dehydration [Recovered/Resolved]
  - Blood sodium decreased [Recovered/Resolved]
  - Renal failure [Not Recovered/Not Resolved]
  - Metastatic gastric cancer [Fatal]

NARRATIVE: CASE EVENT DATE: 20140625
